FAERS Safety Report 15840001 (Version 1)
Quarter: 2019Q1

REPORT INFORMATION
  Report Type: Spontaneous
  Country: GB (occurrence: GB)
  Receive Date: 20190117
  Receipt Date: 20190117
  Transmission Date: 20190417
  Serious: Yes (Hospitalization)
  Sender: FDA-Public Use
  Company Number: GB-TEVA-2019-GB-998891

PATIENT
  Age: 81 Year
  Sex: Male

DRUGS (4)
  1. FLUCONAZOLE. [Suspect]
     Active Substance: FLUCONAZOLE
     Indication: OESOPHAGITIS
     Dosage: 50 MILLIGRAM DAILY;
     Route: 048
     Dates: start: 20061026, end: 20061120
  2. OCTREOTIDE. [Concomitant]
     Active Substance: OCTREOTIDE
     Indication: VIPOMA
     Dosage: 200 MICROGRAM DAILY;
     Route: 058
     Dates: start: 20061007
  3. SIMVASTATIN. [Suspect]
     Active Substance: SIMVASTATIN
     Indication: PROPHYLAXIS
     Dosage: STARTED LONG TERM
     Route: 048
     Dates: end: 20061119
  4. PARACETAMOL [Concomitant]
     Active Substance: ACETAMINOPHEN
     Indication: PAIN
     Dosage: 4 GRAM DAILY;
     Route: 048

REACTIONS (2)
  - Renal impairment [Recovering/Resolving]
  - Rhabdomyolysis [Recovering/Resolving]
